FAERS Safety Report 6524788-9 (Version None)
Quarter: 2009Q4

REPORT INFORMATION
  Report Type: 
  Country: None (occurrence: None)
  Receive Date: 20091224
  Receipt Date: 20091224
  Transmission Date: 20100525
  Serious: No
  Sender: FDA-Public Use
  Company Number: None

PATIENT
  Age: 71 Year
  Sex: Male
  Weight: 71.2147 kg

DRUGS (7)
  1. COLD REMEDY ORAL MIST [Suspect]
     Dosage: ONE DOSE -ONE DOSE
     Dates: start: 20091215, end: 20091215
  2. AVODART [Concomitant]
  3. LARGININE [Concomitant]
  4. GABA [Concomitant]
  5. CARNITIN [Concomitant]
  6. D 3 [Concomitant]
  7. COMPOUNDED T4 [Concomitant]

REACTIONS (1)
  - AGEUSIA [None]
